FAERS Safety Report 18119565 (Version 1)
Quarter: 2020Q3

REPORT INFORMATION
  Report Type: Spontaneous
  Country: US (occurrence: US)
  Receive Date: 20200806
  Receipt Date: 20200806
  Transmission Date: 20201103
  Serious: Yes (Hospitalization, Other)
  Sender: FDA-Public Use
  Company Number: US-BRISTOL-MYERS SQUIBB COMPANY-BMS-2020-059966

PATIENT
  Age: 42 Year
  Sex: Female

DRUGS (4)
  1. COUMADIN [Suspect]
     Active Substance: WARFARIN SODIUM
     Indication: PROTEIN S DECREASED
  2. WARFARIN SODIUM. [Suspect]
     Active Substance: WARFARIN SODIUM
     Indication: PROTEIN S DECREASED
  3. COUMADIN [Suspect]
     Active Substance: WARFARIN SODIUM
     Indication: THROMBOSIS
     Dosage: 7 MILLIGRAM, QD
     Route: 048
  4. WARFARIN SODIUM. [Suspect]
     Active Substance: WARFARIN SODIUM
     Indication: THROMBOSIS
     Dosage: UNK
     Route: 065

REACTIONS (6)
  - Abdominal symptom [Unknown]
  - Memory impairment [Unknown]
  - Prothrombin level decreased [Unknown]
  - Thrombosis [Unknown]
  - Vomiting [Unknown]
  - International normalised ratio increased [Recovering/Resolving]
